FAERS Safety Report 4658850-2 (Version None)
Quarter: 2005Q2

REPORT INFORMATION
  Report Type: 
  Country: None (occurrence: None)
  Receive Date: 20050509
  Receipt Date: 20050428
  Transmission Date: 20051028
  Serious: Yes (Other)
  Sender: FDA-Public Use
  Company Number: 2005069050

PATIENT
  Age: 56 Year
  Sex: Male

DRUGS (3)
  1. BEXTRA [Suspect]
     Indication: ILL-DEFINED DISORDER
     Dosage: (40 MG), ORAL
     Route: 048
     Dates: start: 20040601
  2. CAPTOPRIL [Concomitant]
  3. AMITRIPTYLINE HCL [Concomitant]

REACTIONS (4)
  - DEPRESSION [None]
  - HAEMORRHAGE [None]
  - NERVOUS SYSTEM DISORDER [None]
  - URINARY INCONTINENCE [None]
